FAERS Safety Report 12421771 (Version 2)
Quarter: 2016Q2

REPORT INFORMATION
  Report Type: Spontaneous
  Country: US (occurrence: US)
  Receive Date: 20160531
  Receipt Date: 20160623
  Transmission Date: 20160815
  Serious: No
  Sender: FDA-Public Use
  Company Number: US-PFIZER INC-2016280479

PATIENT
  Age: 79 Year
  Sex: Female
  Weight: 64.85 kg

DRUGS (2)
  1. GABAPENTIN. [Suspect]
     Active Substance: GABAPENTIN
     Indication: PAIN
     Dosage: 100 MG, AS NEEDED
  2. GABAPENTIN. [Suspect]
     Active Substance: GABAPENTIN
     Indication: CHEST PAIN
     Dosage: 100 MG, 1X/DAY

REACTIONS (9)
  - Vision blurred [Recovering/Resolving]
  - Pain [Unknown]
  - Product use issue [Unknown]
  - Activities of daily living impaired [Unknown]
  - Impaired driving ability [Unknown]
  - Dizziness [Recovering/Resolving]
  - Asthenopia [Unknown]
  - Balance disorder [Not Recovered/Not Resolved]
  - Malaise [Not Recovered/Not Resolved]
